FAERS Safety Report 5026929-1 (Version None)
Quarter: 2006Q2

REPORT INFORMATION
  Report Type: 
  Country: None (occurrence: None)
  Receive Date: 20060609
  Receipt Date: 20060418
  Transmission Date: 20061013
  Serious: Yes (Other)
  Sender: FDA-Public Use
  Company Number: S06-UKI-01993-01

PATIENT
  Age: 36 Year
  Sex: Male

DRUGS (2)
  1. ESCITALOPRAM OXALATE [Suspect]
     Indication: DEPRESSION
     Dosage: 30 MG DAILY PO
     Route: 048
  2. CITALOPRAM HYDROBROMIDE [Concomitant]

REACTIONS (6)
  - AGGRESSION [None]
  - COGNITIVE DISORDER [None]
  - PARKINSONISM [None]
  - PRESCRIBED OVERDOSE [None]
  - TARDIVE DYSKINESIA [None]
  - UNEVALUABLE EVENT [None]
